FAERS Safety Report 23829660 (Version 1)
Quarter: 2024Q2

REPORT INFORMATION
  Report Type: Spontaneous
  Country: CN (occurrence: CN)
  Receive Date: 20240508
  Receipt Date: 20240508
  Transmission Date: 20240716
  Serious: Yes (Other)
  Sender: FDA-Public Use
  Company Number: CN-SHANGHAI JUNSHI BIOSCIENCES CO., LTD.-CN2024009937

PATIENT

DRUGS (15)
  1. TORIPALIMAB [Suspect]
     Active Substance: TORIPALIMAB
     Indication: Cervix carcinoma
     Dosage: 240 MG
     Route: 041
     Dates: start: 20240126, end: 20240126
  2. TORIPALIMAB [Suspect]
     Active Substance: TORIPALIMAB
     Dosage: 240 MG
     Route: 041
     Dates: start: 20240222, end: 20240222
  3. TORIPALIMAB [Suspect]
     Active Substance: TORIPALIMAB
     Dosage: 240 MG
     Route: 041
     Dates: start: 20240314, end: 20240314
  4. TORIPALIMAB [Suspect]
     Active Substance: TORIPALIMAB
     Dosage: 240 MG
     Route: 041
     Dates: start: 20240412, end: 20240412
  5. PACLITAXEL [Suspect]
     Active Substance: PACLITAXEL
     Dosage: 450 MG (D1)
     Route: 041
     Dates: start: 20240126, end: 20240126
  6. PACLITAXEL [Suspect]
     Active Substance: PACLITAXEL
     Dosage: 450 MG (D1)
     Route: 041
     Dates: start: 20240222, end: 20240222
  7. PACLITAXEL [Suspect]
     Active Substance: PACLITAXEL
     Dosage: 450 MG (D1)
     Route: 041
     Dates: start: 20240314, end: 20240314
  8. PACLITAXEL [Suspect]
     Active Substance: PACLITAXEL
     Dosage: 400 MG (D1)
     Route: 041
     Dates: start: 20240413, end: 20240413
  9. CISPLATIN [Suspect]
     Active Substance: CISPLATIN
     Indication: Cervix carcinoma
     Dosage: 60 MG (D1)
     Route: 041
     Dates: start: 20240126, end: 20240126
  10. CISPLATIN [Suspect]
     Active Substance: CISPLATIN
     Dosage: 70 MG (D2)
     Route: 041
     Dates: start: 20240126, end: 20240126
  11. CISPLATIN [Suspect]
     Active Substance: CISPLATIN
     Dosage: 60 MG (D1)
     Route: 041
     Dates: start: 20240222, end: 20240222
  12. CISPLATIN [Suspect]
     Active Substance: CISPLATIN
     Dosage: 70 MG (D2)
     Route: 041
     Dates: start: 20240222, end: 20240222
  13. CISPLATIN [Suspect]
     Active Substance: CISPLATIN
     Dosage: 60 MG (D1)
     Route: 041
     Dates: start: 20240314, end: 20240314
  14. CISPLATIN [Suspect]
     Active Substance: CISPLATIN
     Dosage: 70 MG (D2)
     Route: 041
     Dates: start: 20240314, end: 20240314
  15. CISPLATIN [Suspect]
     Active Substance: CISPLATIN
     Dosage: 40 MG (D1-D3), QD
     Route: 041
     Dates: start: 20240413, end: 20240415

REACTIONS (2)
  - Myelosuppression [Recovering/Resolving]
  - Off label use [Unknown]

NARRATIVE: CASE EVENT DATE: 20240126
